FAERS Safety Report 17706194 (Version 7)
Quarter: 2024Q4

REPORT INFORMATION
  Report Type: Spontaneous
  Country: RU (occurrence: RU)
  Receive Date: 20200424
  Receipt Date: 20241119
  Transmission Date: 20250115
  Serious: Yes (Death, Hospitalization, Other)
  Sender: PFIZER
  Company Number: RU-MLMSERVICE-20200416-2253504-2

PATIENT
  Age: 13 Year
  Sex: Female

DRUGS (13)
  1. DOXORUBICIN HYDROCHLORIDE [Suspect]
     Active Substance: DOXORUBICIN HYDROCHLORIDE
     Indication: Ewing^s sarcoma
     Dosage: UNK, CYCLIC (EVERY 4 CYCLICAL, ON THE 8TH DAY AFTER THE 4TH COURSE)
  2. FLUCONAZOLE [Suspect]
     Active Substance: FLUCONAZOLE
     Dosage: 400 MG, 1X/DAY
     Route: 048
  3. FLUCONAZOLE [Suspect]
     Active Substance: FLUCONAZOLE
     Dosage: REINITIATION
  4. FLUCONAZOLE [Suspect]
     Active Substance: FLUCONAZOLE
     Dosage: 6 MG/KG, 1X/DAY
     Route: 042
  5. MEROPENEM [Suspect]
     Active Substance: MEROPENEM
     Indication: Candida infection
     Dosage: UNK
  6. MEROPENEM [Suspect]
     Active Substance: MEROPENEM
     Dosage: REINITIATION
  7. ETOPOSIDE [Suspect]
     Active Substance: ETOPOSIDE
     Indication: Ewing^s sarcoma
     Dosage: UNK, CYCLIC (EVERY 4 CYCLICAL, ON THE 8TH DAY AFTER THE 4TH COURSE)
  8. IFOSFAMIDE [Suspect]
     Active Substance: IFOSFAMIDE
     Indication: Ewing^s sarcoma
     Dosage: UNK, CYCLIC (EVERY 4 CYCLICAL, ON THE 8TH DAY AFTER THE 4TH COURSE)
  9. VINCRISTINE [Suspect]
     Active Substance: VINCRISTINE
     Indication: Ewing^s sarcoma
     Dosage: UNK, CYCLIC (EVERY 4 CYCLICAL, ON THE 8TH DAY AFTER THE 4TH COURSE)
  10. AMIKACIN [Suspect]
     Active Substance: AMIKACIN
     Indication: Candida infection
     Dosage: REINITIATION
  11. AMIKACIN [Suspect]
     Active Substance: AMIKACIN
     Dosage: UNK
  12. VANCOMYCIN [Suspect]
     Active Substance: VANCOMYCIN
     Indication: Candida infection
     Dosage: UNK
  13. VANCOMYCIN [Suspect]
     Active Substance: VANCOMYCIN
     Dosage: REINITIATION

REACTIONS (10)
  - Multiple organ dysfunction syndrome [Fatal]
  - Febrile bone marrow aplasia [Not Recovered/Not Resolved]
  - Oral candidiasis [Not Recovered/Not Resolved]
  - Oesophageal candidiasis [Not Recovered/Not Resolved]
  - Candida sepsis [Not Recovered/Not Resolved]
  - Neutropenic colitis [Not Recovered/Not Resolved]
  - Vulvovaginitis [Not Recovered/Not Resolved]
  - Cystitis [Not Recovered/Not Resolved]
  - Dermatitis [Not Recovered/Not Resolved]
  - Enterococcal infection [Not Recovered/Not Resolved]
